FAERS Safety Report 11623818 (Version 1)
Quarter: 2015Q4

REPORT INFORMATION
  Report Type: Spontaneous
  Country: US (occurrence: US)
  Receive Date: 20151013
  Receipt Date: 20151013
  Transmission Date: 20160304
  Serious: No
  Sender: FDA-Public Use
  Company Number: US-JNJFOC-20150307213

PATIENT
  Age: 47 Year
  Sex: Female
  Weight: 72.58 kg

DRUGS (6)
  1. BENADRYL [Concomitant]
     Active Substance: DIPHENHYDRAMINE HYDROCHLORIDE
     Indication: SNEEZING
     Dosage: TWO CAPLETS, 2-3 TIMES A WEEK FOR A MONTH
     Route: 048
  2. BENADRYL [Concomitant]
     Active Substance: DIPHENHYDRAMINE HYDROCHLORIDE
     Indication: SINUS CONGESTION
     Dosage: TWO CAPLETS, 2-3 TIMES A WEEK FOR A MONTH
     Route: 048
  3. BENADRYL [Concomitant]
     Active Substance: DIPHENHYDRAMINE HYDROCHLORIDE
     Indication: SINUS HEADACHE
     Dosage: TWO CAPLETS, 2-3 TIMES A WEEK FOR A MONTH
     Route: 048
  4. TYLENOL EXTRA STRENGTH [Suspect]
     Active Substance: ACETAMINOPHEN
     Indication: SINUS CONGESTION
     Dosage: TWO CAPLETS, 2-3 TIMES A WEEK FOR A MONTH
     Route: 048
  5. TYLENOL EXTRA STRENGTH [Suspect]
     Active Substance: ACETAMINOPHEN
     Indication: SNEEZING
     Dosage: TWO CAPLETS, 2-3 TIMES A WEEK FOR A MONTH
     Route: 048
  6. TYLENOL EXTRA STRENGTH [Suspect]
     Active Substance: ACETAMINOPHEN
     Indication: SINUS HEADACHE
     Dosage: TWO CAPLETS, 2-3 TIMES A WEEK FOR A MONTH
     Route: 048

REACTIONS (3)
  - Product use issue [Unknown]
  - Inappropriate schedule of drug administration [Unknown]
  - Drug ineffective [Unknown]
